FAERS Safety Report 20016549 (Version 1)
Quarter: 2021Q4

REPORT INFORMATION
  Report Type: Spontaneous
  Country: US (occurrence: None)
  Receive Date: 20211104
  Receipt Date: 20211104
  Transmission Date: 20220304
  Serious: No
  Sender: FDA-Public Use
  Company Number: None

PATIENT
  Age: 51 Year
  Sex: Male

DRUGS (1)
  1. HUMIRA [Suspect]
     Active Substance: ADALIMUMAB
     Indication: Psoriatic arthropathy
     Dosage: OTHER STRENGTH : 40MG/0.8ML; OTHER?
     Route: 058
     Dates: start: 202108

REACTIONS (2)
  - Drug ineffective [None]
  - Pain [None]

NARRATIVE: CASE EVENT DATE: 20211104
